FAERS Safety Report 16133987 (Version 2)
Quarter: 2019Q2

REPORT INFORMATION
  Report Type: Spontaneous
  Country: US (occurrence: US)
  Receive Date: 20190329
  Receipt Date: 20190419
  Transmission Date: 20190711
  Serious: Yes (Other)
  Sender: FDA-Public Use
  Company Number: US-ASTRAZENECA-2019SE36542

PATIENT
  Age: 21818 Day
  Sex: Male
  Weight: 102.5 kg

DRUGS (9)
  1. GLIPIZIDE. [Concomitant]
     Active Substance: GLIPIZIDE
     Indication: DIABETES MELLITUS
     Route: 048
  2. TYLENOL [Concomitant]
     Active Substance: ACETAMINOPHEN
     Dosage: AS REQUIRED
     Route: 048
  3. AMIODARONE [Concomitant]
     Active Substance: AMIODARONE
     Indication: CARDIAC DISORDER
     Route: 048
  4. ATORVASTATIN [Concomitant]
     Active Substance: ATORVASTATIN
     Indication: CARDIAC DISORDER
     Route: 048
  5. MOTRIN [Concomitant]
     Active Substance: IBUPROFEN
     Dosage: AS REQUIRED
     Route: 048
  6. METOPROLOL TARTRATE. [Suspect]
     Active Substance: METOPROLOL TARTRATE
     Indication: CARDIAC DISORDER
     Route: 048
  7. XARELTO [Concomitant]
     Active Substance: RIVAROXABAN
     Indication: CARDIAC DISORDER
     Route: 048
  8. BYDUREON BCISE [Suspect]
     Active Substance: EXENATIDE
     Indication: TYPE 2 DIABETES MELLITUS
     Route: 058
     Dates: start: 20181205
  9. MOEXIPRIL [Concomitant]
     Active Substance: MOEXIPRIL HYDROCHLORIDE
     Indication: CARDIAC DISORDER
     Route: 048

REACTIONS (6)
  - Intentional device misuse [Unknown]
  - Injection site nodule [Not Recovered/Not Resolved]
  - Injection site mass [Not Recovered/Not Resolved]
  - Device leakage [Unknown]
  - Incorrect dose administered [Unknown]
  - Device defective [Unknown]

NARRATIVE: CASE EVENT DATE: 20181206
